FAERS Safety Report 4694266-0 (Version None)
Quarter: 2005Q2

REPORT INFORMATION
  Report Type: 
  Country: None (occurrence: None)
  Receive Date: 20050620
  Receipt Date: 20050422
  Transmission Date: 20051028
  Serious: Yes (Hospitalization)
  Sender: FDA-Public Use
  Company Number: US-BOEHRINGER INGELHEIM PHARMACEUTICALS, INC.-2005-BP-06623BP

PATIENT
  Age: 66 Year
  Sex: Female

DRUGS (20)
  1. MICARDIS [Suspect]
     Indication: HYPERTENSION
     Route: 048
     Dates: start: 20050101, end: 20050417
  2. PROBENECID [Suspect]
     Indication: GOUT
     Dates: end: 20050422
  3. NEURONTIN [Suspect]
     Indication: NEUROPATHY PERIPHERAL
     Dates: end: 20050422
  4. DARVOCET-N 100 [Concomitant]
     Indication: NEUROPATHY PERIPHERAL
  5. FLONASE [Concomitant]
     Indication: HYPERSENSITIVITY
  6. AZMACORT [Concomitant]
     Indication: CHRONIC OBSTRUCTIVE PULMONARY DISEASE
     Dosage: QID
     Route: 055
  7. ALBUTEROL [Concomitant]
     Indication: CHRONIC OBSTRUCTIVE PULMONARY DISEASE
     Dosage: PRN
  8. ATROVENT [Concomitant]
     Indication: CHRONIC OBSTRUCTIVE PULMONARY DISEASE
     Dosage: QID
     Route: 055
  9. PROTONIX [Concomitant]
     Indication: GASTROOESOPHAGEAL REFLUX DISEASE
  10. AMARYL [Concomitant]
     Indication: DIABETES MELLITUS
  11. CALAN [Concomitant]
     Indication: HYPERTENSION
  12. K-DUR 10 [Concomitant]
     Indication: MEDICAL DIET
  13. MTV [Concomitant]
     Indication: MEDICAL DIET
  14. CALCIUM GLUCONATE [Concomitant]
     Indication: OSTEOPOROSIS
  15. MSM [Concomitant]
     Indication: MEDICAL DIET
  16. LASIX [Concomitant]
     Indication: HYPERTENSION
  17. SYNTHROID [Concomitant]
     Indication: HYPOTHYROIDISM
  18. ZETIA [Concomitant]
     Indication: BLOOD CHOLESTEROL
     Dosage: EVERY OTHER MONTH
  19. ZYRTEC [Concomitant]
  20. ZITRIX [Concomitant]
     Indication: BLOOD CHOLESTEROL INCREASED

REACTIONS (24)
  - ALANINE AMINOTRANSFERASE INCREASED [None]
  - ASPARTATE AMINOTRANSFERASE INCREASED [None]
  - ASTHENIA [None]
  - BACK PAIN [None]
  - BLOOD CREATINE PHOSPHOKINASE INCREASED [None]
  - BLOOD GLUCOSE INCREASED [None]
  - CELLULITIS [None]
  - CLOSTRIDIUM COLITIS [None]
  - CONDITION AGGRAVATED [None]
  - DECREASED APPETITE [None]
  - DIARRHOEA [None]
  - DIFFICULTY IN WALKING [None]
  - DYSPNOEA [None]
  - ERYTHEMA [None]
  - FATIGUE [None]
  - FEELING ABNORMAL [None]
  - GASTROOESOPHAGEAL REFLUX DISEASE [None]
  - MYALGIA [None]
  - NAUSEA [None]
  - OEDEMA [None]
  - OEDEMA PERIPHERAL [None]
  - PAIN IN EXTREMITY [None]
  - RHABDOMYOLYSIS [None]
  - SINUS TACHYCARDIA [None]
